FAERS Safety Report 8127734-X (Version None)
Quarter: 2011Q4

REPORT INFORMATION
  Report Type: 
  Country: None (occurrence: None)
  Receive Date: 20111230
  Receipt Date: 20111004
  Transmission Date: 20120403
  Serious: Yes (Other)
  Sender: FDA-Public Use
  Company Number: 303733USA

PATIENT
  Sex: Female

DRUGS (1)
  1. TOPIRAMATE [Suspect]
     Indication: CONVULSION
     Dosage: (100 MG)

REACTIONS (3)
  - PRODUCT SUBSTITUTION ISSUE [None]
  - PRODUCT MEASURED POTENCY ISSUE [None]
  - CONVULSION [None]
